FAERS Safety Report 4839662-3 (Version None)
Quarter: 2005Q4

REPORT INFORMATION
  Report Type: 
  Country: None (occurrence: None)
  Receive Date: 20051129
  Receipt Date: 20050512
  Transmission Date: 20060501
  Serious: No
  Sender: FDA-Public Use
  Company Number: US-GLAXOSMITHKLINE-A0558344A

PATIENT
  Age: 46 Year
  Sex: Female

DRUGS (3)
  1. WELLBUTRIN SR [Suspect]
     Dosage: 100MG PER DAY
     Route: 048
     Dates: start: 20050505
  2. WELLBUTRIN XL [Suspect]
     Indication: AGITATION
     Dosage: 300MG PER DAY
     Route: 048
     Dates: start: 20031101
  3. BIRTH CONTROL [Concomitant]

REACTIONS (5)
  - AGITATION [None]
  - ANXIETY [None]
  - DIZZINESS [None]
  - NEGATIVISM [None]
  - THERAPEUTIC RESPONSE UNEXPECTED [None]
